FAERS Safety Report 5113251-8 (Version None)
Quarter: 2006Q3

REPORT INFORMATION
  Report Type: 
  Country: None (occurrence: None)
  Receive Date: 20060920
  Receipt Date: 20060906
  Transmission Date: 20061208
  Serious: Yes (Hospitalization)
  Sender: FDA-Public Use
  Company Number: 2006001784

PATIENT
  Age: 57 Year
  Sex: Female

DRUGS (5)
  1. TARCEVA [Suspect]
     Indication: NON-SMALL CELL LUNG CANCER
     Dosage: SEE IMAGE, ORAL
     Route: 048
     Dates: start: 20050401, end: 20050810
  2. TARCEVA [Suspect]
     Indication: NON-SMALL CELL LUNG CANCER
     Dosage: SEE IMAGE, ORAL
     Route: 048
     Dates: start: 20050821, end: 20050909
  3. TARCEVA [Suspect]
     Indication: NON-SMALL CELL LUNG CANCER
     Dosage: SEE IMAGE, ORAL
     Route: 048
     Dates: start: 20051017, end: 20060117
  4. TARCEVA [Suspect]
     Indication: NON-SMALL CELL LUNG CANCER
     Dosage: SEE IMAGE, ORAL
     Route: 048
     Dates: start: 20060118, end: 20060601
  5. TARCEVA [Suspect]
     Indication: NON-SMALL CELL LUNG CANCER
     Dosage: SEE IMAGE, ORAL
     Route: 048
     Dates: start: 20060601, end: 20060814

REACTIONS (14)
  - ACNE [None]
  - COUGH [None]
  - DIARRHOEA [None]
  - DYSPNOEA [None]
  - INSOMNIA [None]
  - METASTASES TO CENTRAL NERVOUS SYSTEM [None]
  - MUSCLE SPASMS [None]
  - POSTNASAL DRIP [None]
  - PULMONARY OEDEMA [None]
  - SKIN BURNING SENSATION [None]
  - THIRST [None]
  - THROAT IRRITATION [None]
  - URINARY TRACT INFECTION [None]
  - URTICARIA [None]
